FAERS Safety Report 4653271-0 (Version None)
Quarter: 2005Q2

REPORT INFORMATION
  Report Type: 
  Country: None (occurrence: None)
  Receive Date: 20050505
  Receipt Date: 20041201
  Transmission Date: 20051028
  Serious: Yes (Death)
  Sender: FDA-Public Use
  Company Number: DE-BOEHRINGER INGELHEIM PHARMACEUTICALS, INC.-2004-DE-06113BY

PATIENT
  Sex: Female

DRUGS (3)
  1. KINZALKOMB [Suspect]
     Indication: AMNESTIC DISORDER
     Route: 048
     Dates: start: 20040205
  2. ASPIRIN [Concomitant]
     Route: 048
     Dates: start: 19981219
  3. APROVEL [Concomitant]
     Route: 048
     Dates: start: 20040205

REACTIONS (1)
  - CEREBRAL HAEMORRHAGE [None]
